FAERS Safety Report 5618786-7 (Version None)
Quarter: 2008Q1

REPORT INFORMATION
  Report Type: 
  Country: None (occurrence: None)
  Receive Date: 20080207
  Receipt Date: 20080206
  Transmission Date: 20080703
  Serious: Yes (Other)
  Sender: FDA-Public Use
  Company Number: JP-BRISTOL-MYERS SQUIBB COMPANY-14066740

PATIENT
  Age: 54 Year
  Sex: Male

DRUGS (3)
  1. BLEOMYCIN SULFATE [Suspect]
     Indication: TESTICULAR SEMINOMA (PURE) STAGE II
  2. CISPLATIN [Suspect]
     Indication: TESTICULAR SEMINOMA (PURE) STAGE II
  3. VINCRISTINE SULFATE [Suspect]
     Indication: TESTICULAR SEMINOMA (PURE) STAGE II

REACTIONS (1)
  - URETERIC CANCER [None]
